FAERS Safety Report 9034338 (Version 1)
Quarter: 2013Q1

REPORT INFORMATION
  Report Type: Spontaneous
  Country: US (occurrence: US)
  Receive Date: 20130128
  Receipt Date: 20130128
  Transmission Date: 20140127
  Serious: Yes (Other)
  Sender: FDA-Public Use
  Company Number: US-AMGEN-USASP2012067489

PATIENT
  Sex: Female
  Weight: 86.17 kg

DRUGS (10)
  1. ENBREL [Suspect]
     Indication: RHEUMATOID ARTHRITIS
     Dosage: 50 MG, QWK
     Route: 058
     Dates: end: 201108
  2. PROTONIX [Concomitant]
     Dosage: 40 MG, UNK
  3. CALCIUM D                          /00944201/ [Concomitant]
     Dosage: UNK
  4. KEPPRA [Concomitant]
     Dosage: 500 MG, UNK
  5. LAMICTAL [Concomitant]
     Dosage: 150 MG, UNK
  6. LOSARTAN POTASSIUM [Concomitant]
     Dosage: 25 MG, UNK
  7. CELEBREX [Concomitant]
     Dosage: 200 MG, UNK
  8. MULTIVITAMINS, PLAIN [Concomitant]
     Dosage: UNK
  9. FISH OIL [Concomitant]
     Dosage: UNK
  10. METHOTREXATE [Concomitant]
     Dosage: 2.5 MG, UNK

REACTIONS (3)
  - Encephalitis [Unknown]
  - Convulsion [Unknown]
  - Rheumatoid arthritis [Unknown]
